FAERS Safety Report 14122087 (Version 1)
Quarter: 2017Q4

REPORT INFORMATION
  Report Type: Report from Study
  Country: DK (occurrence: DK)
  Receive Date: 20171024
  Receipt Date: 20171024
  Transmission Date: 20180321
  Serious: Yes (Hospitalization)
  Sender: FDA-Public Use
  Company Number: DK-JNJFOC-20171015380

PATIENT
  Age: 16 Year
  Sex: Female
  Weight: 54 kg

DRUGS (3)
  1. REMICADE [Suspect]
     Active Substance: INFLIXIMAB
     Indication: CROHN^S DISEASE
     Route: 042
     Dates: start: 20110905, end: 20120402
  2. TACROLIMUS. [Concomitant]
     Active Substance: TACROLIMUS
     Route: 065
  3. PREDNISONE. [Concomitant]
     Active Substance: PREDNISONE
     Route: 065

REACTIONS (5)
  - Abdominal pain upper [Recovered/Resolved]
  - Constipation [Recovered/Resolved]
  - Pyrexia [Recovered/Resolved]
  - Bile duct stenosis [Recovered/Resolved]
  - Stoma obstruction [Recovered/Resolved]

NARRATIVE: CASE EVENT DATE: 20130713
